FAERS Safety Report 10076165 (Version 2)
Quarter: 2014Q3

REPORT INFORMATION
  Report Type: Spontaneous
  Country: US (occurrence: US)
  Receive Date: 20140414
  Receipt Date: 20140725
  Transmission Date: 20150326
  Serious: Yes (Other)
  Sender: FDA-Public Use
  Company Number: US-BAYER-2014-051562

PATIENT
  Age: 70 Year
  Sex: Female

DRUGS (1)
  1. BAYER GENUINE ASPIRIN [Suspect]
     Active Substance: ASPIRIN
     Indication: ANTICOAGULANT THERAPY
     Dosage: 1 DF, PRN
     Route: 048

REACTIONS (5)
  - Vascular rupture [None]
  - Off label use [None]
  - Pain in extremity [None]
  - Drug hypersensitivity [Not Recovered/Not Resolved]
  - Spontaneous haemorrhage [None]
